FAERS Safety Report 25539059 (Version 1)
Quarter: 2025Q3

REPORT INFORMATION
  Report Type: Spontaneous
  Country: US (occurrence: None)
  Receive Date: 20250709
  Receipt Date: 20250709
  Transmission Date: 20251021
  Serious: Yes (Disabling)
  Sender: FDA-CTU
  Company Number: None

PATIENT
  Age: 50 Year
  Weight: 58.5 kg

DRUGS (1)
  1. TIRZEPATIDE [Suspect]
     Active Substance: TIRZEPATIDE
     Indication: Weight decreased
     Dates: start: 20240715, end: 20250415

REACTIONS (6)
  - Uterine polyp [None]
  - Menstrual disorder [None]
  - Heavy menstrual bleeding [None]
  - Intermenstrual bleeding [None]
  - Intermenstrual bleeding [None]
  - Thyroid function test abnormal [None]

NARRATIVE: CASE EVENT DATE: 20250301
